FAERS Safety Report 6323570-5 (Version None)
Quarter: 2009Q3

REPORT INFORMATION
  Report Type: 
  Country: None (occurrence: None)
  Receive Date: 20090824
  Receipt Date: 20090610
  Transmission Date: 20100115
  Serious: No
  Sender: FDA-Public Use
  Company Number: US-ABBOTT-09P-163-0579187-00

PATIENT
  Sex: Female
  Weight: 4.368 kg

DRUGS (2)
  1. NIASPAN [Suspect]
     Indication: BLOOD CHOLESTEROL INCREASED
     Dosage: 500 MG DAILY
     Dates: start: 20090608
  2. OSTEOVALIN [Concomitant]
     Indication: OSTEOPENIA

REACTIONS (5)
  - ERYTHEMA [None]
  - FATIGUE [None]
  - FLUSHING [None]
  - OEDEMA PERIPHERAL [None]
  - PRURITUS [None]
